FAERS Safety Report 15460915 (Version 2)
Quarter: 2018Q4

REPORT INFORMATION
  Report Type: Spontaneous
  Country: US (occurrence: US)
  Receive Date: 20181003
  Receipt Date: 20181221
  Transmission Date: 20190204
  Serious: No
  Sender: FDA-Public Use
  Company Number: US-ALKERMES INC.-ALK-2018-003834

PATIENT
  Age: 28 Year
  Sex: Male

DRUGS (1)
  1. ARISTADA [Suspect]
     Active Substance: ARIPIPRAZOLE LAUROXIL
     Indication: SCHIZOPHRENIA
     Dosage: 882 MG, QMO
     Route: 030
     Dates: start: 20171214

REACTIONS (6)
  - Emotional distress [Not Recovered/Not Resolved]
  - Drug ineffective [Not Recovered/Not Resolved]
  - Suicidal ideation [Unknown]
  - Depression [Not Recovered/Not Resolved]
  - Feeling of despair [Not Recovered/Not Resolved]
  - Loss of employment [Not Recovered/Not Resolved]

NARRATIVE: CASE EVENT DATE: 2018
